FAERS Safety Report 8766199 (Version 1)
Quarter: 2012Q4

REPORT INFORMATION
  Report Type: Report from Study
  Country: BE (occurrence: BE)
  Receive Date: 20120904
  Receipt Date: 20120904
  Transmission Date: 20130627
  Serious: Yes (Hospitalization)
  Sender: FDA-Public Use
  Company Number: BE-ROCHE-1108768

PATIENT
  Age: 59 Year
  Sex: Male
  Weight: 105.3 kg

DRUGS (9)
  1. MABTHERA [Suspect]
     Indication: MANTLE CELL LYMPHOMA
     Route: 041
     Dates: start: 20120716
  2. ARACYTINE [Suspect]
     Indication: MANTLE CELL LYMPHOMA
     Route: 042
     Dates: start: 20120716
  3. OXALIPLATIN [Suspect]
     Indication: MANTLE CELL LYMPHOMA
     Route: 042
     Dates: start: 20120716
  4. DEXAMETHASONE [Suspect]
     Indication: MANTLE CELL LYMPHOMA
     Route: 048
     Dates: start: 20120716
  5. ZOVIRAX [Concomitant]
     Indication: PROPHYLAXIS
     Route: 048
     Dates: start: 20120718
  6. BACTRIM FORTE [Concomitant]
     Indication: PROPHYLAXIS
     Route: 065
     Dates: start: 20120718
  7. INNOHEP [Concomitant]
     Indication: PULMONARY EMBOLISM
     Route: 058
     Dates: start: 201206
  8. INSULIN [Concomitant]
     Indication: DIABETES MELLITUS
     Route: 058
  9. ASAFLOW [Concomitant]
     Indication: PULMONARY EMBOLISM
     Route: 048
     Dates: start: 201206

REACTIONS (2)
  - Pyrexia [Recovered/Resolved]
  - General physical health deterioration [Recovered/Resolved]
